FAERS Safety Report 17361461 (Version 1)
Quarter: 2020Q1

REPORT INFORMATION
  Report Type: Spontaneous
  Country: US (occurrence: US)
  Receive Date: 20200117
  Receipt Date: 20200117
  Transmission Date: 20200409
  Serious: No
  Sender: FDA-Public Use
  Company Number: None

PATIENT
  Age: 60 Year
  Sex: Female

DRUGS (1)
  1. CYCLOSPORINE CAP 25MG [Suspect]
     Active Substance: CYCLOSPORINE
     Route: 048
     Dates: start: 20191220

REACTIONS (4)
  - Product substitution issue [None]
  - Abdominal discomfort [None]
  - Swelling face [None]
  - Condition aggravated [None]

NARRATIVE: CASE EVENT DATE: 20200117
